FAERS Safety Report 19958684 (Version 2)
Quarter: 2022Q4

REPORT INFORMATION
  Report Type: Spontaneous
  Country: NL (occurrence: NL)
  Receive Date: 20211015
  Receipt Date: 20221019
  Transmission Date: 20230113
  Serious: Yes (Hospitalization, Other)
  Sender: FDA-Public Use
  Company Number: NL-PFIZER INC-202101352796

PATIENT
  Age: 20 Year
  Sex: Male

DRUGS (2)
  1. PREGABALIN [Suspect]
     Active Substance: PREGABALIN
     Dosage: 2700 MILLIGRAM, Q4H (IN A SPAN OF 4 HRS)
     Route: 048
  2. PREGABALIN [Suspect]
     Active Substance: PREGABALIN
     Dosage: 37.0 MILLIGRAM/KILOGRAM, UNK
     Route: 065

REACTIONS (6)
  - Toxicity to various agents [Unknown]
  - Hyperthermia [Unknown]
  - Somnolence [Unknown]
  - Hypertension [Unknown]
  - Intentional overdose [Unknown]
  - Prescribed overdose [Unknown]
